FAERS Safety Report 7264028-9 (Version None)
Quarter: 2011Q1

REPORT INFORMATION
  Report Type: 
  Country: None (occurrence: None)
  Receive Date: 20110130
  Receipt Date: 20101217
  Transmission Date: 20110831
  Serious: No
  Sender: FDA-Public Use
  Company Number: US-ABBOTT-10P-163-0692439-00

PATIENT
  Age: 67 Year
  Sex: Female

DRUGS (14)
  1. VITAMIN B-12 [Concomitant]
     Indication: VITAMIN SUPPLEMENTATION
  2. VITAMIN D [Concomitant]
     Indication: VITAMIN SUPPLEMENTATION
  3. CALCIUM [Concomitant]
     Indication: PRODUCT USED FOR UNKNOWN INDICATION
  4. VICODIN [Concomitant]
     Indication: PAIN
  5. HUMIRA [Suspect]
     Indication: CROHN'S DISEASE
     Dates: start: 20101101
  6. ACTONEL [Concomitant]
     Indication: BONE DENSITY ABNORMAL
  7. FOLIC ACID [Concomitant]
     Indication: PRODUCT USED FOR UNKNOWN INDICATION
  8. MULTI-VITAMIN [Concomitant]
     Indication: VITAMIN SUPPLEMENTATION
  9. ZOLOFT [Concomitant]
     Indication: ANXIETY
  10. ASPIRIN [Concomitant]
     Indication: CONGENITAL CARDIOVASCULAR ANOMALY
  11. POTASSIUM [Concomitant]
     Indication: VITAMIN SUPPLEMENTATION
  12. VITAMIN E [Concomitant]
     Indication: PRODUCT USED FOR UNKNOWN INDICATION
  13. ASCORBIC ACID [Concomitant]
     Indication: PRODUCT USED FOR UNKNOWN INDICATION
  14. LYRICA [Concomitant]
     Indication: PAIN

REACTIONS (1)
  - ARTHRALGIA [None]
